FAERS Safety Report 9181373 (Version 2)
Quarter: 2013Q1

REPORT INFORMATION
  Report Type: Spontaneous
  Country: KR (occurrence: KR)
  Receive Date: 20130322
  Receipt Date: 20130322
  Transmission Date: 20140127
  Serious: Yes (Death, Other)
  Sender: FDA-Public Use
  Company Number: KR-BAYER-2013-034754

PATIENT
  Age: 55 Year
  Sex: Male

DRUGS (2)
  1. NEXAVAR [Suspect]
     Indication: HEPATIC CANCER METASTATIC
     Dosage: 400 MG, BID
     Route: 048
     Dates: start: 20110120, end: 20110330
  2. NEXAVAR [Suspect]
     Indication: HEPATIC CANCER METASTATIC
     Dosage: 400 MG, QD
     Dates: start: 20110330

REACTIONS (3)
  - Death [Fatal]
  - Pleuritic pain [Recovering/Resolving]
  - Palmar-plantar erythrodysaesthesia syndrome [None]
